FAERS Safety Report 10457198 (Version 2)
Quarter: 2014Q4

REPORT INFORMATION
  Report Type: Spontaneous
  Country: US (occurrence: US)
  Receive Date: 20140916
  Receipt Date: 20141114
  Transmission Date: 20150528
  Serious: Yes (Death, Hospitalization, Other)
  Sender: FDA-Public Use
  Company Number: US-009507513-1409USA007062

PATIENT
  Sex: Female
  Weight: 81.63 kg

DRUGS (1)
  1. JANUVIA [Suspect]
     Active Substance: SITAGLIPTIN PHOSPHATE
     Indication: TYPE 2 DIABETES MELLITUS
     Dosage: 100 MG, QD
     Route: 048
     Dates: start: 2011

REACTIONS (7)
  - Metastases to lymph nodes [Unknown]
  - Pancreaticoduodenectomy [Unknown]
  - Hypertension [Unknown]
  - Cholecystectomy [Unknown]
  - Urinary tract infection [Unknown]
  - Ductal adenocarcinoma of pancreas [Unknown]
  - Death [Fatal]

NARRATIVE: CASE EVENT DATE: 20111104
